FAERS Safety Report 10071913 (Version 1)
Quarter: 2014Q2

REPORT INFORMATION
  Report Type: Report from Study
  Country: GB (occurrence: GB)
  Receive Date: 20140411
  Receipt Date: 20140411
  Transmission Date: 20141212
  Serious: Yes (Hospitalization)
  Sender: FDA-Public Use
  Company Number: GB-AMGEN INC.-GBRCT2014025780

PATIENT
  Age: 48 Year
  Sex: Female
  Weight: 106 kg

DRUGS (9)
  1. ETANERCEPT [Suspect]
     Indication: PRODUCT USED FOR UNKNOWN INDICATION
     Dosage: 50 MG, QWK
     Route: 065
     Dates: start: 20130829
  2. SIMVASTATIN [Concomitant]
     Dosage: UNK
     Dates: start: 20091103
  3. RANITIDINE [Concomitant]
     Dosage: UNK
     Dates: start: 20091103
  4. NICORANDIL [Concomitant]
     Dosage: UNK
     Dates: start: 20091103
  5. RAMIPRIL [Concomitant]
     Dosage: UNK
     Dates: start: 20091103
  6. BISOPROLOL [Concomitant]
     Dosage: UNK
     Dates: start: 20091103
  7. CITALOPRAM [Concomitant]
     Dosage: UNK
     Dates: start: 20091213
  8. GLICLAZIDE [Concomitant]
     Dosage: UNK
     Dates: start: 20120901
  9. METFORMIN [Concomitant]
     Dosage: UNK
     Dates: start: 20100701

REACTIONS (1)
  - Osteomyelitis [Recovered/Resolved]
